FAERS Safety Report 17867197 (Version 2)
Quarter: 2020Q3

REPORT INFORMATION
  Report Type: Spontaneous
  Country: AU (occurrence: AU)
  Receive Date: 20200605
  Receipt Date: 20200701
  Transmission Date: 20201103
  Serious: Yes (Other)
  Sender: FDA-Public Use
  Company Number: AU-JNJFOC-20200536324

PATIENT
  Age: 49 Year
  Sex: Male

DRUGS (6)
  1. LIGNOCAINE                         /00033401/ [Concomitant]
     Active Substance: LIDOCAINE HYDROCHLORIDE
  2. ULTRAVIST [Concomitant]
     Active Substance: IOPROMIDE
     Indication: PRODUCT USED FOR UNKNOWN INDICATION
     Dosage: 240
  3. DUROGESIC [Suspect]
     Active Substance: FENTANYL
     Indication: PRODUCT USED FOR UNKNOWN INDICATION
     Route: 065
  4. MIDAZOLAM. [Concomitant]
     Active Substance: MIDAZOLAM
  5. ONDANSETRON [Concomitant]
     Active Substance: ONDANSETRON
  6. HYDROCORTISONE. [Concomitant]
     Active Substance: HYDROCORTISONE

REACTIONS (6)
  - Skin warm [Unknown]
  - Restlessness [Unknown]
  - Hypotension [Unknown]
  - Erythema [Unknown]
  - Rash [Unknown]
  - Cold sweat [Unknown]

NARRATIVE: CASE EVENT DATE: 20191104
